FAERS Safety Report 8028204-X (Version None)
Quarter: 2012Q1

REPORT INFORMATION
  Report Type: 
  Country: None (occurrence: None)
  Receive Date: 20120106
  Receipt Date: 20111229
  Transmission Date: 20120608
  Serious: Yes (Hospitalization, Other)
  Sender: FDA-Public Use
  Company Number: US-ABBOTT-11P-163-0887728-00

PATIENT
  Age: 20 Year
  Sex: Female

DRUGS (5)
  1. MULTI-VITAMIN [Concomitant]
     Indication: PRODUCT USED FOR UNKNOWN INDICATION
     Dosage: DAILY
  2. CALCIUM ACETATE [Concomitant]
     Indication: PRODUCT USED FOR UNKNOWN INDICATION
     Dosage: DAILY
  3. FOLIC ACID [Concomitant]
     Indication: PRODUCT USED FOR UNKNOWN INDICATION
     Dosage: DAILY
  4. OMEPRAZOLE [Concomitant]
     Indication: PRODUCT USED FOR UNKNOWN INDICATION
     Dosage: DAILY
  5. HUMIRA [Suspect]
     Indication: CROHN'S DISEASE
     Dates: start: 20070101

REACTIONS (11)
  - SWELLING FACE [None]
  - WOUND DEHISCENCE [None]
  - CROHN'S DISEASE [None]
  - PNEUMONIA [None]
  - LYMPHADENOPATHY [None]
  - ILEOSTOMY [None]
  - ASTHMA [None]
  - PAIN [None]
  - COLECTOMY [None]
  - IMPAIRED HEALING [None]
  - GASTROINTESTINAL STOMA COMPLICATION [None]
